FAERS Safety Report 9393533 (Version 1)
Quarter: 2013Q3

REPORT INFORMATION
  Report Type: Spontaneous
  Country: US (occurrence: US)
  Receive Date: 20130710
  Receipt Date: 20130710
  Transmission Date: 20140515
  Serious: Yes (Hospitalization)
  Sender: FDA-Public Use
  Company Number: US-BRISTOL-MYERS SQUIBB COMPANY-19064831

PATIENT
  Sex: Male

DRUGS (2)
  1. BYDUREON 2MG SUSPENSION [Suspect]
     Route: 058
  2. METFORMIN [Concomitant]

REACTIONS (1)
  - Loss of consciousness [Unknown]
